FAERS Safety Report 4719879-9 (Version None)
Quarter: 2005Q3

REPORT INFORMATION
  Report Type: 
  Country: None (occurrence: None)
  Receive Date: 20050721
  Receipt Date: 20041223
  Transmission Date: 20060218
  Serious: No
  Sender: FDA-Public Use
  Company Number: US-GLAXOSMITHKLINE-A0538503A

PATIENT
  Age: 57 Year
  Sex: Male

DRUGS (3)
  1. AVANDIA [Suspect]
     Indication: DRUG USE FOR UNKNOWN INDICATION
     Dosage: 4MG PER DAY
     Route: 048
     Dates: start: 20040216, end: 20040903
  2. LIPITOR [Concomitant]
  3. ATENOLOL [Concomitant]

REACTIONS (3)
  - FLUID RETENTION [None]
  - HYPERGLYCAEMIA [None]
  - WEIGHT INCREASED [None]
